FAERS Safety Report 9899849 (Version 2)
Quarter: 2014Q1

REPORT INFORMATION
  Report Type: Other
  Country: FR (occurrence: JP)
  Receive Date: 20140214
  Receipt Date: 20140214
  Transmission Date: 20141002
  Serious: Yes (Hospitalization, Other)
  Sender: FDA-Public Use
  Company Number: JP-FRI-1000025891

PATIENT
  Age: 22 Year
  Sex: Female

DRUGS (4)
  1. MILNACIPRAN [Suspect]
     Indication: DEPRESSION
     Route: 048
  2. FLUVOXAMINE MALEATE [Suspect]
     Indication: DEPRESSION
     Route: 048
  3. QUETIAPINE [Concomitant]
  4. SODIUM VALPROATE [Concomitant]

REACTIONS (3)
  - Suicide attempt [Recovered/Resolved]
  - Suicidal behaviour [Recovered/Resolved]
  - Overdose [Recovered/Resolved]
